FAERS Safety Report 19398074 (Version 1)
Quarter: 2021Q2

REPORT INFORMATION
  Report Type: Spontaneous
  Country: US (occurrence: US)
  Receive Date: 20210609
  Receipt Date: 20210609
  Transmission Date: 20210717
  Serious: Yes (Disabling, Other)
  Sender: FDA-Public Use
  Company Number: None

PATIENT
  Age: 43 Year
  Sex: Female
  Weight: 70.2 kg

DRUGS (4)
  1. INJECTAFER [Suspect]
     Active Substance: FERRIC CARBOXYMALTOSE
     Indication: BLOOD IRON DECREASED
     Dates: start: 20210525, end: 20210526
  2. MULTI VITAMIN [Concomitant]
     Active Substance: VITAMINS
  3. PROZAC [Concomitant]
     Active Substance: FLUOXETINE HYDROCHLORIDE
  4. LOW LOW ESTRIN FE [Concomitant]

REACTIONS (3)
  - Impaired work ability [None]
  - Epistaxis [None]
  - Blood pressure increased [None]

NARRATIVE: CASE EVENT DATE: 20210529
